FAERS Safety Report 21007539 (Version 1)
Quarter: 2022Q2

REPORT INFORMATION
  Report Type: Spontaneous
  Country: JP (occurrence: JP)
  Receive Date: 20220626
  Receipt Date: 20220626
  Transmission Date: 20220720
  Serious: Yes (Other)
  Sender: FDA-Public Use
  Company Number: JP-BRISTOL-MYERS SQUIBB COMPANY-BMS-2021-136342

PATIENT
  Age: 73 Year
  Sex: Female
  Weight: 59.6 kg

DRUGS (4)
  1. YERVOY [Suspect]
     Active Substance: IPILIMUMAB
     Indication: Metastatic renal cell carcinoma
     Dosage: 60.1 MG
     Route: 041
     Dates: start: 20210908, end: 20210908
  2. YERVOY [Suspect]
     Active Substance: IPILIMUMAB
     Dosage: 59 MG
     Route: 041
     Dates: start: 20220228
  3. OPDIVO [Suspect]
     Active Substance: NIVOLUMAB
     Indication: Metastatic renal cell carcinoma
     Dosage: 240
     Route: 041
     Dates: start: 20210908, end: 20210908
  4. OPDIVO [Suspect]
     Active Substance: NIVOLUMAB
     Dosage: 240
     Route: 041
     Dates: start: 20220228

REACTIONS (1)
  - Rheumatoid arthritis [Recovered/Resolved]

NARRATIVE: CASE EVENT DATE: 20210920
